FAERS Safety Report 8919889 (Version 1)
Quarter: 2012Q4

REPORT INFORMATION
  Report Type: 
  Country: US (occurrence: US)
  Receive Date: 20121121
  Receipt Date: 20121121
  Transmission Date: 20130627
  Serious: Yes (Hospitalization, Other)
  Sender: FDA-Public Use
  Company Number: US-AMGEN-USASP2012074145

PATIENT
  Age: 47 Year
  Sex: Female

DRUGS (2)
  1. ENBREL [Suspect]
     Indication: PSORIASIS
     Dosage: 50 mg, 2 times/wk
     Dates: start: 20060905
  2. ENBREL [Suspect]
     Indication: PSORIATIC ARTHROPATHY

REACTIONS (11)
  - Renal failure [Recovered/Resolved]
  - Localised infection [Recovered/Resolved]
  - Fall [Recovered/Resolved]
  - Staphylococcal infection [Recovered/Resolved]
  - Hypoaesthesia [Recovered/Resolved]
  - Throat lesion [Recovered/Resolved]
  - Cough [Not Recovered/Not Resolved]
  - Dyspnoea [Recovered/Resolved]
  - Rhinorrhoea [Not Recovered/Not Resolved]
  - Bronchitis [Recovered/Resolved]
  - Sinusitis [Recovered/Resolved]
